FAERS Safety Report 22041752 (Version 2)
Quarter: 2023Q2

REPORT INFORMATION
  Report Type: Spontaneous
  Country: JP (occurrence: JP)
  Receive Date: 20230227
  Receipt Date: 20230405
  Transmission Date: 20230721
  Serious: Yes (Hospitalization, Other)
  Sender: FDA-Public Use
  Company Number: JP-ASTELLAS-2023JP001950

PATIENT
  Sex: Male
  Weight: 39.6 kg

DRUGS (7)
  1. LINACLOTIDE [Suspect]
     Active Substance: LINACLOTIDE
     Indication: Constipation
     Dosage: 0.5 MG/DAY, UNKNOWN FREQUENCY
     Route: 048
     Dates: start: 20230130, end: 20230209
  2. LEVOFLOXACIN HEMIHYDRATE [Suspect]
     Active Substance: LEVOFLOXACIN
     Indication: Pyelonephritis
     Dosage: 500 MG, QD
     Dates: start: 20230131, end: 20230205
  3. MOSAPRIDE CITRATE [Suspect]
     Active Substance: MOSAPRIDE CITRATE
     Indication: Chronic gastritis
     Dosage: 5 MG
     Dates: start: 20220830, end: 20230210
  4. ASPIRIN [Concomitant]
     Active Substance: ASPIRIN
     Indication: Cerebral infarction
     Dosage: 100 MG, QD
  5. VONOPRAZAN FUMARATE [Concomitant]
     Active Substance: VONOPRAZAN FUMARATE
     Indication: Chronic gastritis
     Dosage: 20 MG, QD
  6. MAGNESIUM OXIDE [Concomitant]
     Active Substance: MAGNESIUM OXIDE
     Indication: Constipation
     Dosage: 330 MG, QD
  7. ELOBIXIBAT [Concomitant]
     Active Substance: ELOBIXIBAT
     Indication: Constipation
     Dosage: 10 MG, QD
     Dates: start: 20221108

REACTIONS (1)
  - Drug-induced liver injury [Recovering/Resolving]

NARRATIVE: CASE EVENT DATE: 20230206
